FAERS Safety Report 4889975-4 (Version None)
Quarter: 2006Q1

REPORT INFORMATION
  Report Type: 
  Country: None (occurrence: None)
  Receive Date: 20060123
  Receipt Date: 20060123
  Transmission Date: 20060701
  Serious: Yes (Other)
  Sender: FDA-Public Use
  Company Number: None

PATIENT
  Sex: Female

DRUGS (2)
  1. AMOXICILLIN PEDIATRIC [Suspect]
     Indication: EAR INFECTION
  2. AMOXICILLIN PEDIATRIC [Suspect]
     Indication: PNEUMONIA

REACTIONS (1)
  - TOOTH DECALCIFICATION [None]
